FAERS Safety Report 6596538-1 (Version None)
Quarter: 2010Q1

REPORT INFORMATION
  Report Type: 
  Country: None (occurrence: None)
  Receive Date: 20100222
  Receipt Date: 20100222
  Transmission Date: 20100710
  Serious: No
  Sender: FDA-Public Use
  Company Number: None

PATIENT
  Sex: Female
  Weight: 90.9 kg

DRUGS (1)
  1. CIPROFLAXACIN -ORAL 750 MG [Suspect]
     Indication: INFECTION
     Dosage: 750 MG TAB 2-TAB/DAILY

REACTIONS (5)
  - ANXIETY [None]
  - HALLUCINATION [None]
  - HEART RATE IRREGULAR [None]
  - INSOMNIA [None]
  - SELF-INJURIOUS IDEATION [None]
